FAERS Safety Report 6570366-5 (Version None)
Quarter: 2010Q1

REPORT INFORMATION
  Report Type: 
  Country: None (occurrence: None)
  Receive Date: 20100204
  Receipt Date: 20100129
  Transmission Date: 20100710
  Serious: Yes (Other)
  Sender: FDA-Public Use
  Company Number: US-MERCK-1001USA01880

PATIENT
  Age: 14 Year
  Sex: Female

DRUGS (4)
  1. SINGULAIR [Suspect]
     Indication: ASTHMA
     Route: 048
     Dates: start: 20040101, end: 20091201
  2. VITAMINS (UNSPECIFIED) [Concomitant]
     Route: 065
  3. ALBUTEROL [Concomitant]
     Route: 055
  4. XOPENEX [Concomitant]
     Route: 055

REACTIONS (4)
  - ANGER [None]
  - DRUG INEFFECTIVE [None]
  - IRRITABILITY [None]
  - SUICIDAL IDEATION [None]
